FAERS Safety Report 11362585 (Version 1)
Quarter: 2015Q3

REPORT INFORMATION
  Report Type: Spontaneous
  Country: US (occurrence: US)
  Receive Date: 20150810
  Receipt Date: 20150810
  Transmission Date: 20151125
  Serious: Yes (Other)
  Sender: FDA-Public Use
  Company Number: US-MYLANLABS-2015M1025452

PATIENT

DRUGS (2)
  1. CHEMOTHERAPEUTICS [Concomitant]
     Active Substance: UNSPECIFIED INGREDIENT
     Indication: NEOPLASM MALIGNANT
     Dosage: UNK
     Dates: end: 201507
  2. FENTANYL TRANSDERMAL SYSTEM [Suspect]
     Active Substance: FENTANYL
     Indication: CANCER PAIN
     Dosage: 100 ?G, QH, CHANGED Q72H
     Route: 062
     Dates: start: 201502

REACTIONS (1)
  - Drug ineffective [Not Recovered/Not Resolved]

NARRATIVE: CASE EVENT DATE: 201502
